FAERS Safety Report 7121171-2 (Version None)
Quarter: 2010Q4

REPORT INFORMATION
  Report Type: 
  Country: None (occurrence: None)
  Receive Date: 20101124
  Receipt Date: 20101111
  Transmission Date: 20110411
  Serious: Yes (Other)
  Sender: FDA-Public Use
  Company Number: PHHY2010BR75161

PATIENT
  Age: 25 Year
  Sex: Male

DRUGS (3)
  1. TEGRETOL-XR [Suspect]
     Indication: CONVULSION
     Dosage: 400 MG, UNK
  2. TEGRETOL-XR [Suspect]
     Indication: PETIT MAL EPILEPSY
  3. ENDOFOLIN [Concomitant]
     Dosage: 5 MG, 1 TABLET A DAY

REACTIONS (5)
  - EPILEPSY [None]
  - FALL [None]
  - HEAD INJURY [None]
  - PETIT MAL EPILEPSY [None]
  - VITAMIN B12 DEFICIENCY [None]
